FAERS Safety Report 20763333 (Version 5)
Quarter: 2023Q1

REPORT INFORMATION
  Report Type: Spontaneous
  Country: US (occurrence: US)
  Receive Date: 20220428
  Receipt Date: 20230309
  Transmission Date: 20230418
  Serious: Yes (Other)
  Sender: FDA-Public Use
  Company Number: US-PFIZER INC-202200512521

PATIENT
  Age: 51 Year
  Sex: Female

DRUGS (1)
  1. IBRANCE [Suspect]
     Active Substance: PALBOCICLIB
     Dosage: 125 MG, CYCLIC (TAKE 1 TABLET BY MOUTH ONCE DAILY ON DAYS 1 TO 21, FOLLOWED BY 7 DAYS OF REST)
     Route: 048
     Dates: start: 20220331, end: 2022

REACTIONS (8)
  - Dental care [Unknown]
  - Feeling cold [Unknown]
  - Fatigue [Unknown]
  - Migraine [Unknown]
  - Dyspnoea [Unknown]
  - Nausea [Unknown]
  - Pain in extremity [Unknown]
  - Product dose omission in error [Unknown]

NARRATIVE: CASE EVENT DATE: 20220101
